FAERS Safety Report 6645934-2 (Version None)
Quarter: 2010Q1

REPORT INFORMATION
  Report Type: 
  Country: None (occurrence: None)
  Receive Date: 20100323
  Receipt Date: 20100316
  Transmission Date: 20100710
  Serious: Yes (Other)
  Sender: FDA-Public Use
  Company Number: US-BRISTOL-MYERS SQUIBB COMPANY-15021025

PATIENT
  Age: 67 Year
  Sex: Male
  Weight: 86 kg

DRUGS (10)
  1. COUMADIN [Suspect]
     Indication: COAGULOPATHY
     Route: 048
     Dates: start: 19950101
  2. COUMADIN [Suspect]
     Indication: ATRIAL FIBRILLATION
     Route: 048
     Dates: start: 19950101
  3. ULORIC [Suspect]
     Indication: GOUT
     Dosage: FROM 14-DEC-2009; 40MG,1/2 IN AM AND 1/2 IN PM
     Route: 048
     Dates: start: 20091213, end: 20091214
  4. MULTI-VITAMIN [Concomitant]
     Route: 048
  5. ZINC [Concomitant]
     Indication: INFECTION PROPHYLAXIS
     Route: 048
  6. FINASTERIDE [Concomitant]
     Indication: PROSTATIC DISORDER
     Route: 048
     Dates: start: 20080101
  7. DILTIAZEM HCL [Concomitant]
     Indication: HEART RATE
     Route: 048
     Dates: start: 20080101
  8. COLCHICINE [Concomitant]
     Indication: GOUT
     Route: 048
     Dates: start: 20090101
  9. WELCHOL [Concomitant]
     Indication: PROPHYLAXIS
     Route: 048
     Dates: start: 20100105
  10. NAPROXEN [Concomitant]
     Indication: GOUT
     Route: 048

REACTIONS (4)
  - GOUT [None]
  - HAEMATURIA [None]
  - RENAL CYST [None]
  - TACHYCARDIA [None]
